FAERS Safety Report 9434594 (Version 4)
Quarter: 2013Q4

REPORT INFORMATION
  Report Type: Spontaneous
  Country: US (occurrence: US)
  Receive Date: 20130801
  Receipt Date: 20131004
  Transmission Date: 20140711
  Serious: No
  Sender: FDA-Public Use
  Company Number: US-PFIZER INC-2013221454

PATIENT
  Age: 61 Year
  Sex: Male
  Weight: 65.3 kg

DRUGS (2)
  1. NICOTROL NASAL SPRAY [Suspect]
     Indication: SMOKING CESSATION THERAPY
     Dosage: UNK
     Route: 045
     Dates: start: 2013, end: 20130726
  2. NICOTROL NASAL SPRAY [Suspect]
     Dosage: UNK
     Route: 045

REACTIONS (4)
  - Tobacco user [Unknown]
  - Wrong technique in drug usage process [Unknown]
  - Poor quality drug administered [Unknown]
  - Product packaging quantity issue [Unknown]
